FAERS Safety Report 6589050-7 (Version None)
Quarter: 2010Q1

REPORT INFORMATION
  Report Type: 
  Country: None (occurrence: None)
  Receive Date: 20100218
  Receipt Date: 20100211
  Transmission Date: 20100710
  Serious: Yes (Hospitalization, Disabling, Other)
  Sender: FDA-Public Use
  Company Number: US-MERCK-0903USA01371

PATIENT
  Age: 57 Year
  Sex: Female

DRUGS (4)
  1. FOSAMAX [Suspect]
     Indication: OSTEOPOROSIS
     Route: 048
     Dates: start: 20030201, end: 20070201
  2. EVISTA [Concomitant]
     Indication: NEOPLASM MALIGNANT
     Route: 065
     Dates: start: 19960101
  3. EVISTA [Concomitant]
     Indication: OSTEOPENIA
     Route: 065
     Dates: start: 19960101
  4. PAXIL [Concomitant]
     Indication: DEPRESSION
     Route: 065
     Dates: start: 20001114

REACTIONS (27)
  - AMNESIA [None]
  - BLOOD CHOLESTEROL INCREASED [None]
  - BLOOD GLUCOSE INCREASED [None]
  - BONE DENSITY DECREASED [None]
  - BRAIN NEOPLASM MALIGNANT [None]
  - CENTRAL NERVOUS SYSTEM LESION [None]
  - COUGH [None]
  - CYSTITIS [None]
  - DECREASED APPETITE [None]
  - DIARRHOEA [None]
  - DRUG HYPERSENSITIVITY [None]
  - EDENTULOUS [None]
  - FALL [None]
  - GASTROOESOPHAGEAL REFLUX DISEASE [None]
  - HAND FRACTURE [None]
  - HYPERTENSION [None]
  - HYPOTHYROIDISM [None]
  - JAW DISORDER [None]
  - METASTASES TO LIVER [None]
  - METASTATIC RENAL CELL CARCINOMA [None]
  - MOUTH ULCERATION [None]
  - OSTEONECROSIS [None]
  - OSTEORADIONECROSIS [None]
  - PAIN IN EXTREMITY [None]
  - PYREXIA [None]
  - STOMATITIS [None]
  - URINARY TRACT INFECTION [None]
